FAERS Safety Report 8570560-8 (Version None)
Quarter: 2012Q3

REPORT INFORMATION
  Report Type: 
  Country: None (occurrence: None)
  Receive Date: 20120803
  Receipt Date: 20120727
  Transmission Date: 20120928
  Serious: Yes (Hospitalization)
  Sender: FDA-Public Use
  Company Number: AT-B.I. PHARMACEUTICALS,INC./RIDGEFIELD-2012-EU-03905GD

PATIENT
  Age: 71 Year
  Sex: Female

DRUGS (4)
  1. PRAMIPEXOLE DIHYCHLORIDE [Suspect]
  2. LEVODOPA/CARBIDOPA/ENTACAPONE [Suspect]
     Dosage: LCVODOPA/CARBIDOPA/ENTACAPONE 100/25/200MG NINE TIMES DAILY
  3. PRAMIPEXOLE DIHYCHLORIDE [Suspect]
     Indication: PARKINSON'S DISEASE
  4. LEVODOPA/CARBIDOPA/ENTACAPONE [Suspect]
     Indication: PARKINSON'S DISEASE
     Dosage: LCVODOPA/CARBIDOPA/ENTACAPONE 100/25/200MG FIVE TIMES DAILY

REACTIONS (4)
  - DOPAMINE DYSREGULATION SYNDROME [None]
  - DRUG EFFECT DECREASED [None]
  - DRUG DEPENDENCE [None]
  - DYSKINESIA [None]
